FAERS Safety Report 4693515-2 (Version None)
Quarter: 2005Q2

REPORT INFORMATION
  Report Type: 
  Country: None (occurrence: None)
  Receive Date: 20050615
  Receipt Date: 20040917
  Transmission Date: 20051028
  Serious: Yes (Other)
  Sender: FDA-Public Use
  Company Number: MED000164

PATIENT
  Age: 27 Year
  Sex: Female
  Weight: 102.0593 kg

DRUGS (1)
  1. LACTATED RINGERS INJECTION IN PLASTIC CONTAINER [Suspect]
     Indication: INFUSION
     Dosage: IV
     Route: 042
     Dates: start: 20040915, end: 20040916

REACTIONS (10)
  - CAESAREAN SECTION [None]
  - DIZZINESS [None]
  - INFUSION RELATED REACTION [None]
  - LATEX ALLERGY [None]
  - PHARMACEUTICAL PRODUCT COMPLAINT [None]
  - PRURITUS [None]
  - SWELLING FACE [None]
  - SWOLLEN TONGUE [None]
  - TREMOR [None]
  - URTICARIA GENERALISED [None]
